FAERS Safety Report 21222694 (Version 1)
Quarter: 2022Q3

REPORT INFORMATION
  Report Type: Spontaneous
  Country: DK (occurrence: DK)
  Receive Date: 20220817
  Receipt Date: 20220817
  Transmission Date: 20221027
  Serious: Yes (Other)
  Sender: FDA-Public Use
  Company Number: None

PATIENT

DRUGS (4)
  1. SOTROVIMAB [Suspect]
     Active Substance: SOTROVIMAB
     Indication: Plasma cell myeloma
     Dosage: 500 MG(TOTAL)(STRENGTH: 500 MG)
     Route: 042
     Dates: start: 20220131, end: 20220131
  2. ZOLEDRONIC ACID [Suspect]
     Active Substance: ZOLEDRONIC ACID
     Indication: Plasma cell myeloma
     Dosage: 4 MG, EVERY 3-4 WEEKS(STRENGTH: 4 MG/5 ML  )
     Route: 042
     Dates: start: 20200812
  3. REVLIMID [Suspect]
     Active Substance: LENALIDOMIDE
     Indication: Plasma cell myeloma
     Dosage: 10 MG, QOD (STRENGTH: 10 MG)
     Route: 048
     Dates: start: 20200504
  4. VELCADE [Suspect]
     Active Substance: BORTEZOMIB
     Indication: Plasma cell myeloma
     Dosage: 1.4 MG, WE (STRENGTH: 3.5 MG   )
     Route: 058
     Dates: start: 20200505

REACTIONS (1)
  - Osteonecrosis of jaw [Not Recovered/Not Resolved]

NARRATIVE: CASE EVENT DATE: 20220411
